FAERS Safety Report 13269241 (Version 2)
Quarter: 2017Q1

REPORT INFORMATION
  Report Type: Spontaneous
  Country: FR (occurrence: FR)
  Receive Date: 20170224
  Receipt Date: 20170228
  Transmission Date: 20170428
  Serious: Yes (Other)
  Sender: FDA-Public Use
  Company Number: FR-ASTRAZENECA-2017SE19668

PATIENT
  Age: 984 Month
  Sex: Female

DRUGS (11)
  1. LAMALINE [Suspect]
     Active Substance: ACETAMINOPHEN\CAFFEINE\OPIUM
     Dosage: IF NEEDED
     Route: 048
     Dates: start: 201510
  2. AMLOR [Concomitant]
     Active Substance: AMLODIPINE BESYLATE
  3. AMLODIPINE [Suspect]
     Active Substance: AMLODIPINE BESYLATE
     Route: 048
     Dates: start: 2015
  4. AMLODIPINE [Suspect]
     Active Substance: AMLODIPINE BESYLATE
     Route: 048
     Dates: start: 201508
  5. PAROXETINE. [Suspect]
     Active Substance: PAROXETINE
     Route: 048
     Dates: start: 2016
  6. CRESTOR [Suspect]
     Active Substance: ROSUVASTATIN CALCIUM
     Dosage: 10.0MG UNKNOWN
     Route: 048
  7. CRESTOR [Interacting]
     Active Substance: ROSUVASTATIN CALCIUM
     Dosage: 20.0MG UNKNOWN
     Route: 048
     Dates: start: 201608
  8. SODIUM ALGINATE [Concomitant]
     Active Substance: SODIUM ALGINATE
  9. KARDEGIC [Suspect]
     Active Substance: ASPIRIN LYSINE
     Dosage: 75.0MG UNKNOWN
     Route: 048
     Dates: start: 2015
  10. INIPOMP [Suspect]
     Active Substance: PANTOPRAZOLE SODIUM
     Dosage: 40.0MG UNKNOWN
     Route: 048
     Dates: start: 201608
  11. VALIUM [Concomitant]
     Active Substance: DIAZEPAM

REACTIONS (2)
  - Dizziness [Recovered/Resolved]
  - Food interaction [Recovered/Resolved]

NARRATIVE: CASE EVENT DATE: 201608
